FAERS Safety Report 10435189 (Version 2)
Quarter: 2015Q1

REPORT INFORMATION
  Report Type: Spontaneous
  Country: JP (occurrence: JP)
  Receive Date: 20140907
  Receipt Date: 20150116
  Transmission Date: 20150720
  Serious: Yes (Death)
  Sender: FDA-Public Use
  Company Number: PHHY2011JP122703

PATIENT
  Age: 70 Year
  Sex: Female

DRUGS (2)
  1. TASIGNA [Suspect]
     Active Substance: NILOTINIB
     Indication: CHRONIC MYELOID LEUKAEMIA
     Dosage: 600 MG, DAILY
     Route: 065
     Dates: start: 20110726, end: 201112
  2. TASIGNA [Suspect]
     Active Substance: NILOTINIB
     Dosage: 600 MG, UNK
     Route: 065
     Dates: start: 201205

REACTIONS (7)
  - Herpes zoster [Unknown]
  - Second primary malignancy [Fatal]
  - Cerebral haemorrhage [Fatal]
  - White blood cell count decreased [Unknown]
  - Platelet count decreased [Unknown]
  - Ovarian cancer [Fatal]
  - Lip and/or oral cavity cancer [Fatal]

NARRATIVE: CASE EVENT DATE: 201109
